FAERS Safety Report 9149954 (Version 1)
Quarter: 2013Q1

REPORT INFORMATION
  Report Type: Spontaneous
  Country: US (occurrence: None)
  Receive Date: 20130129
  Receipt Date: 20130129
  Transmission Date: 20140127
  Serious: Yes (Hospitalization)
  Sender: FDA-Public Use
  Company Number: US-ZYDUS-000908

PATIENT
  Age: 60 Year
  Sex: Female

DRUGS (1)
  1. AMLODIPINE [Suspect]
     Indication: HYPERTENSION

REACTIONS (7)
  - Toxicity to various agents [None]
  - Self-medication [None]
  - Lactic acidosis [None]
  - Small intestinal obstruction [None]
  - Ileus paralytic [None]
  - Shock [None]
  - Accidental overdose [None]
